FAERS Safety Report 8193012-6 (Version None)
Quarter: 2012Q1

REPORT INFORMATION
  Report Type: 
  Country: None (occurrence: None)
  Receive Date: 20120221
  Receipt Date: 20111028
  Transmission Date: 20120608
  Serious: No
  Sender: FDA-Public Use
  Company Number: 1000025058

PATIENT
  Age: 62 Year
  Sex: Female

DRUGS (3)
  1. VIIBRYD [Suspect]
     Indication: DEPRESSION
     Dosage: 10 MG (10 MG, 1 IN 1 D), ORAL
     Route: 048
     Dates: start: 20110101, end: 20110101
  2. VITAMIN D (VITAMIN D) (VITAMIN D) [Concomitant]
  3. FOLIC AID (FOLIC ACID) (FOLIC ACID) [Concomitant]

REACTIONS (3)
  - FORMICATION [None]
  - ALOPECIA [None]
  - PRURITUS [None]
